FAERS Safety Report 10176519 (Version 2)
Quarter: 2014Q2

REPORT INFORMATION
  Report Type: Spontaneous
  Country: IT (occurrence: None)
  Receive Date: 20140514
  Receipt Date: 20140516
  Transmission Date: 20141212
  Serious: Yes (Other)
  Sender: FDA-Public Use
  Company Number: AUR-APL-2014-04477

PATIENT
  Age: 79 Year
  Sex: Female

DRUGS (4)
  1. METFORMIN [Suspect]
     Indication: TYPE 2 DIABETES MELLITUS
     Dosage: 3 DOSAGE FORMS
     Route: 048
     Dates: start: 20130101, end: 20130504
  2. GLICLAZIDE [Suspect]
     Indication: TYPE 2 DIABETES MELLITUS
     Dosage: 1 DOSAGE FORMS
     Route: 048
     Dates: start: 20130101, end: 20130504
  3. CARDIRENE (ACETYLSALICYLATE LYSINE) [Concomitant]
  4. LANSOPRAZOLE (LANSOPRAZOLE) [Concomitant]

REACTIONS (3)
  - Hypoglycaemia [None]
  - Asthenia [None]
  - Dysarthria [None]
